FAERS Safety Report 19163760 (Version 3)
Quarter: 2021Q3

REPORT INFORMATION
  Report Type: Spontaneous
  Country: US (occurrence: US)
  Receive Date: 20210421
  Receipt Date: 20210714
  Transmission Date: 20211014
  Serious: No
  Sender: FDA-Public Use
  Company Number: US-SA-2021SA129744

PATIENT
  Age: 64 Year
  Sex: Male

DRUGS (2)
  1. DUPIXENT [Suspect]
     Active Substance: DUPILUMAB
     Indication: DERMATITIS ATOPIC
     Dosage: 600 MG, 1X
     Route: 058
     Dates: start: 20210406, end: 20210406
  2. DUPIXENT [Suspect]
     Active Substance: DUPILUMAB
     Dosage: 300 MG, QOW, STARTING ON DAY 15
     Route: 058
     Dates: start: 202104

REACTIONS (5)
  - Vision blurred [Unknown]
  - Adverse drug reaction [Unknown]
  - Eye swelling [Unknown]
  - Injection site discomfort [Unknown]
  - Injection site erythema [Unknown]

NARRATIVE: CASE EVENT DATE: 2021
